FAERS Safety Report 25139992 (Version 1)
Quarter: 2025Q1

REPORT INFORMATION
  Report Type: Spontaneous
  Country: None (occurrence: CA)
  Receive Date: 20250331
  Receipt Date: 20250331
  Transmission Date: 20250409
  Serious: Yes (Other)
  Sender: MYLAN
  Company Number: CA-MYLANLABS-2025M1026556

PATIENT
  Sex: Female

DRUGS (12)
  1. REVATIO [Suspect]
     Active Substance: SILDENAFIL CITRATE
     Indication: Connective tissue disorder
     Dosage: 20 MILLIGRAM, TID
     Dates: start: 20230531
  2. REVATIO [Suspect]
     Active Substance: SILDENAFIL CITRATE
     Dosage: 20 MILLIGRAM, TID
     Route: 048
     Dates: start: 20230531
  3. REVATIO [Suspect]
     Active Substance: SILDENAFIL CITRATE
     Dosage: 20 MILLIGRAM, TID
     Route: 048
     Dates: start: 20230531
  4. REVATIO [Suspect]
     Active Substance: SILDENAFIL CITRATE
     Dosage: 20 MILLIGRAM, TID
     Dates: start: 20230531
  5. AMBRISENTAN [Concomitant]
     Active Substance: AMBRISENTAN
  6. AMBRISENTAN [Concomitant]
     Active Substance: AMBRISENTAN
     Route: 065
  7. AMBRISENTAN [Concomitant]
     Active Substance: AMBRISENTAN
     Route: 065
  8. AMBRISENTAN [Concomitant]
     Active Substance: AMBRISENTAN
  9. UPTRAVI [Concomitant]
     Active Substance: SELEXIPAG
  10. UPTRAVI [Concomitant]
     Active Substance: SELEXIPAG
     Route: 065
  11. UPTRAVI [Concomitant]
     Active Substance: SELEXIPAG
     Route: 065
  12. UPTRAVI [Concomitant]
     Active Substance: SELEXIPAG

REACTIONS (4)
  - Fatigue [Unknown]
  - Throat irritation [Recovering/Resolving]
  - Dizziness [Unknown]
  - Dyspepsia [Recovering/Resolving]
